FAERS Safety Report 12975585 (Version 1)
Quarter: 2016Q4

REPORT INFORMATION
  Report Type: Report from Study
  Country: None (occurrence: US)
  Receive Date: 20161125
  Receipt Date: 20161125
  Transmission Date: 20170207
  Serious: Yes (Hospitalization)
  Sender: FDA-Public Use
  Company Number: US-ABBVIE-16K-163-1785720-00

PATIENT
  Sex: Female

DRUGS (2)
  1. HUMIRA [Suspect]
     Active Substance: ADALIMUMAB
     Route: 058
     Dates: start: 201610
  2. HUMIRA [Suspect]
     Active Substance: ADALIMUMAB
     Indication: CROHN^S DISEASE
     Route: 058
     Dates: end: 2016

REACTIONS (5)
  - Asthenia [Recovering/Resolving]
  - Fatigue [Recovering/Resolving]
  - Nodule [Recovering/Resolving]
  - Pneumonia [Recovering/Resolving]
  - Exposure to mould [Recovering/Resolving]

NARRATIVE: CASE EVENT DATE: 2016
